FAERS Safety Report 19899231 (Version 1)
Quarter: 2021Q3

REPORT INFORMATION
  Report Type: Spontaneous
  Country: US (occurrence: US)
  Receive Date: 20210929
  Receipt Date: 20210929
  Transmission Date: 20211014
  Serious: No
  Sender: FDA-Public Use
  Company Number: None

PATIENT
  Age: 58 Year
  Sex: Female
  Weight: 68.2 kg

DRUGS (7)
  1. CASIRIVIMAB?IMDEVIMAB [Suspect]
     Active Substance: CASIRIVIMAB\IMDEVIMAB
     Indication: COVID-19
     Dosage: ?          OTHER FREQUENCY:ONCE;?
     Route: 041
     Dates: start: 20210929, end: 20210929
  2. DICLOFENAC 1% TOPICAL GEL [Concomitant]
  3. GABAPENTIN 100MG TID [Concomitant]
  4. BUPROPION 75 MG [Concomitant]
     Active Substance: BUPROPION
  5. TRAMADOL 50MG [Concomitant]
     Active Substance: TRAMADOL
  6. FLOVENT HFA 110 MCG INHALER [Concomitant]
  7. HYROCHLOROTHIAZIDE?LISINOPRIL 25?20MG [Concomitant]

REACTIONS (4)
  - Speech disorder [None]
  - Wheezing [None]
  - Flushing [None]
  - Dyspnoea [None]

NARRATIVE: CASE EVENT DATE: 20210929
